FAERS Safety Report 13731491 (Version 1)
Quarter: 2017Q3

REPORT INFORMATION
  Report Type: Spontaneous
  Country: FR (occurrence: FR)
  Receive Date: 20170707
  Receipt Date: 20170707
  Transmission Date: 20171127
  Serious: Yes (Hospitalization)
  Sender: FDA-Public Use
  Company Number: FR-ELI_LILLY_AND_COMPANY-FR201706010897

PATIENT
  Age: 66 Year
  Sex: Male
  Weight: 64 kg

DRUGS (6)
  1. ALIMTA [Suspect]
     Active Substance: PEMETREXED DISODIUM
     Dosage: 870 MG, CYCLICAL
     Route: 042
     Dates: start: 20161005
  2. CARBOPLATINE [Suspect]
     Active Substance: CARBOPLATIN
     Dosage: 380 MG, CYCLICAL
     Route: 042
     Dates: start: 20160914
  3. CARBOPLATINE [Suspect]
     Active Substance: CARBOPLATIN
     Dosage: 380 MG, CYCLICAL
     Route: 042
     Dates: start: 20161005
  4. CARBOPLATINE [Suspect]
     Active Substance: CARBOPLATIN
     Indication: PLEURAL MESOTHELIOMA MALIGNANT
     Dosage: 340 MG, CYCLICAL
     Route: 042
     Dates: start: 20160824
  5. ALIMTA [Suspect]
     Active Substance: PEMETREXED DISODIUM
     Dosage: 870 MG, CYCLICAL
     Route: 042
     Dates: start: 20160914
  6. ALIMTA [Suspect]
     Active Substance: PEMETREXED DISODIUM
     Indication: PLEURAL MESOTHELIOMA MALIGNANT
     Dosage: 900 MG, CYCLICAL
     Route: 042
     Dates: start: 20160824

REACTIONS (5)
  - Neuropathy peripheral [Recovered/Resolved]
  - Vomiting [Recovered/Resolved]
  - Anaemia [Not Recovered/Not Resolved]
  - Off label use [Unknown]
  - Nephropathy toxic [Not Recovered/Not Resolved]

NARRATIVE: CASE EVENT DATE: 20160824
